FAERS Safety Report 10776188 (Version 1)
Quarter: 2015Q1

REPORT INFORMATION
  Report Type: Other
  Country: US (occurrence: US)
  Receive Date: 20150209
  Receipt Date: 20150209
  Transmission Date: 20150721
  Serious: Yes (Death)
  Sender: FDA-Public Use
  Company Number: US-FRI-1000074304

PATIENT
  Age: 40 Year
  Sex: Male

DRUGS (6)
  1. CLONAZEPAM. [Suspect]
     Active Substance: CLONAZEPAM
  2. CITALOPRAM [Suspect]
     Active Substance: CITALOPRAM HYDROBROMIDE
  3. MORPHINE [Suspect]
     Active Substance: MORPHINE
  4. OXYCODONE [Suspect]
     Active Substance: OXYCODONE
  5. HYDROCODONE [Suspect]
     Active Substance: HYDROCODONE
  6. ACETAMINOPHEN. [Suspect]
     Active Substance: ACETAMINOPHEN

REACTIONS (1)
  - Drug abuse [Fatal]
